FAERS Safety Report 23955877 (Version 2)
Quarter: 2024Q3

REPORT INFORMATION
  Report Type: Spontaneous
  Country: GB (occurrence: GB)
  Receive Date: 20240610
  Receipt Date: 20240716
  Transmission Date: 20241017
  Serious: Yes (Other)
  Sender: ROCHE
  Company Number: GB-ROCHE-3579058

PATIENT
  Age: 75 Year
  Sex: Male
  Weight: 83.7 kg

DRUGS (8)
  1. HEMLIBRA [Suspect]
     Active Substance: EMICIZUMAB-KXWH
     Indication: Factor VIII deficiency
     Route: 065
  2. HEMLIBRA [Suspect]
     Active Substance: EMICIZUMAB-KXWH
     Route: 065
  3. DOCUSATE [Concomitant]
     Active Substance: DOCUSATE
  4. LATANOPROST [Concomitant]
     Active Substance: LATANOPROST
  5. AMLODIPINE [Concomitant]
     Active Substance: AMLODIPINE BESYLATE
  6. ACETAMINOPHEN [Concomitant]
     Active Substance: ACETAMINOPHEN
  7. LANSOPRAZOLE [Concomitant]
     Active Substance: LANSOPRAZOLE
  8. ADVATE [Concomitant]
     Active Substance: ANTIHEMOPHILIC FACTOR, HUMAN RECOMBINANT

REACTIONS (3)
  - Acute myocardial infarction [Unknown]
  - Myocardial infarction [Unknown]
  - Thrombosis [Unknown]

NARRATIVE: CASE EVENT DATE: 20240401
